FAERS Safety Report 6525577-1 (Version None)
Quarter: 2010Q1

REPORT INFORMATION
  Report Type: 
  Country: None (occurrence: None)
  Receive Date: 20100104
  Receipt Date: 20091224
  Transmission Date: 20100710
  Serious: Yes (Other)
  Sender: FDA-Public Use
  Company Number: CN-PFIZER INC-2009314377

PATIENT
  Age: 89 Year
  Sex: Male

DRUGS (4)
  1. ZYVOX [Suspect]
     Indication: LUNG INFECTION
     Dosage: 600 MG, UNK
     Route: 042
     Dates: start: 20091224, end: 20091224
  2. DIFLUCAN [Concomitant]
     Indication: LUNG INFECTION
     Dosage: UNK
  3. TEICOPLANIN [Concomitant]
     Indication: LUNG INFECTION
     Dosage: UNK
     Dates: end: 20091201
  4. MEROPENEM [Concomitant]
     Indication: LUNG INFECTION
     Dosage: UNK

REACTIONS (4)
  - COMA [None]
  - DEPRESSED LEVEL OF CONSCIOUSNESS [None]
  - DYSPNOEA [None]
  - SALIVARY HYPERSECRETION [None]
